FAERS Safety Report 4778905-1 (Version None)
Quarter: 2005Q3

REPORT INFORMATION
  Report Type: 
  Country: None (occurrence: None)
  Receive Date: 20050922
  Receipt Date: 20050913
  Transmission Date: 20060218
  Serious: Yes (Hospitalization, Other)
  Sender: FDA-Public Use
  Company Number: 163-20785-05080112

PATIENT
  Age: 83 Year
  Sex: Male

DRUGS (1)
  1. THALOMID [Suspect]
     Indication: MULTIPLE MYELOMA
     Dosage: 50 MG QHS ORAL
     Route: 048
     Dates: start: 20020724, end: 20050101

REACTIONS (3)
  - DYSPHAGIA [None]
  - NEUROPATHY [None]
  - PNEUMONIA ASPIRATION [None]
